FAERS Safety Report 9524722 (Version 1)
Quarter: 2013Q3

REPORT INFORMATION
  Report Type: Spontaneous
  Country: US (occurrence: None)
  Receive Date: 20130912
  Receipt Date: 20130912
  Transmission Date: 20140515
  Serious: Yes (Life-Threatening, Hospitalization, Disabling)
  Sender: FDA-Public Use
  Company Number: None

PATIENT
  Age: 76 Year
  Sex: Female
  Weight: 66.23 kg

DRUGS (11)
  1. ZOLPIDEM TARTRATE [Suspect]
     Indication: INSOMNIA
     Dates: start: 20050501, end: 20090909
  2. DIAZEPAM [Concomitant]
  3. ALLOPURINOL [Concomitant]
  4. PHENERGAN [Concomitant]
  5. PROTONIX [Concomitant]
  6. ATIVAN [Concomitant]
  7. CYMBALTA [Concomitant]
  8. NORVASC [Concomitant]
  9. CELEBREX [Concomitant]
  10. ENTERAL FEEDING PUMP [Concomitant]
  11. VITAIMIN D [Concomitant]

REACTIONS (3)
  - Upper limb fracture [None]
  - Convulsion [None]
  - Drug prescribing error [None]
